FAERS Safety Report 12224163 (Version 1)
Quarter: 2016Q1

REPORT INFORMATION
  Report Type: Other
  Country: DE (occurrence: DE)
  Receive Date: 20160330
  Receipt Date: 20160330
  Transmission Date: 20160526
  Serious: Yes (Other)
  Sender: FDA-Public Use
  Company Number: DE-DEP_13853_2016

PATIENT
  Age: 60 Year
  Sex: Male

DRUGS (12)
  1. MIDAZOLAM [Suspect]
     Active Substance: MIDAZOLAM\MIDAZOLAM HYDROCHLORIDE
     Dosage: DF
     Dates: start: 200610
  2. ATRACURIUM [Suspect]
     Active Substance: ATRACURIUM
     Indication: GENERAL ANAESTHESIA
     Dosage: DF
     Dates: start: 200607
  3. PROPOFOL. [Suspect]
     Active Substance: PROPOFOL
     Indication: GENERAL ANAESTHESIA
     Dosage: DF
     Dates: start: 200610
  4. MIDAZOLAM [Suspect]
     Active Substance: MIDAZOLAM\MIDAZOLAM HYDROCHLORIDE
     Indication: GENERAL ANAESTHESIA
     Dosage: DF
     Dates: start: 200607
  5. FENTANYL. [Suspect]
     Active Substance: FENTANYL
     Indication: GENERAL ANAESTHESIA
     Dosage: DF
     Dates: start: 200607
  6. CEFUROXIME. [Suspect]
     Active Substance: CEFUROXIME
     Indication: GENERAL ANAESTHESIA
     Dosage: DF
     Dates: start: 200610
  7. (S)-KETAMINE [Suspect]
     Active Substance: ESKETAMINE
     Indication: GENERAL ANAESTHESIA
     Dosage: DF
     Dates: start: 200607
  8. (S)-KETAMINE [Suspect]
     Active Substance: ESKETAMINE
     Dosage: DF
     Dates: start: 200610
  9. CEFUROXIME. [Suspect]
     Active Substance: CEFUROXIME
     Dosage: DF
     Dates: start: 200607
  10. PROPOFOL. [Suspect]
     Active Substance: PROPOFOL
     Dosage: DF
     Dates: start: 200607
  11. FENTANYL. [Suspect]
     Active Substance: FENTANYL
     Dosage: DF
     Dates: start: 200610
  12. ATRACURIUM [Suspect]
     Active Substance: ATRACURIUM
     Dosage: DF
     Dates: start: 200610

REACTIONS (4)
  - Tachycardia [Unknown]
  - Drug hypersensitivity [Unknown]
  - Bronchospasm [Unknown]
  - Anaphylactic reaction [Unknown]
